FAERS Safety Report 14195253 (Version 1)
Quarter: 2017Q4

REPORT INFORMATION
  Report Type: Spontaneous
  Country: JP (occurrence: JP)
  Receive Date: 20171116
  Receipt Date: 20171116
  Transmission Date: 20180321
  Serious: Yes (Death, Hospitalization)
  Sender: FDA-Public Use
  Company Number: JP-NOVAST LABORATORIES, LTD-JP-2017NOV000073

PATIENT
  Sex: Female
  Weight: .21 kg

DRUGS (1)
  1. CARISOPRODOL\ASPIRIN [Suspect]
     Active Substance: ASPIRIN\CARISOPRODOL
     Indication: FOETAL EXPOSURE DURING PREGNANCY
     Dosage: 81 MG, QD
     Route: 064

REACTIONS (6)
  - Umbilical cord vascular disorder [None]
  - Foetal death [Fatal]
  - Oligohydramnios [None]
  - Umbilical cord abnormality [None]
  - Maternal drugs affecting foetus [None]
  - Foetal exposure during pregnancy [Unknown]
